FAERS Safety Report 13190947 (Version 1)
Quarter: 2017Q1

REPORT INFORMATION
  Report Type: Spontaneous
  Country: US (occurrence: US)
  Receive Date: 20170206
  Receipt Date: 20170206
  Transmission Date: 20170428
  Serious: Yes (Hospitalization, Other)
  Sender: FDA-Public Use
  Company Number: US-AMGEN-USASP2017018316

PATIENT
  Age: 58 Year
  Sex: Female

DRUGS (2)
  1. CARVEDILOL. [Concomitant]
     Active Substance: CARVEDILOL
     Dosage: UNK
  2. CORLANOR [Suspect]
     Active Substance: IVABRADINE HYDROCHLORIDE
     Indication: CARDIAC FAILURE
     Dosage: 5 MG, BID
     Route: 065
     Dates: start: 20161222, end: 20170131

REACTIONS (6)
  - Dizziness [Unknown]
  - Dyspnoea [Unknown]
  - Torsade de pointes [Unknown]
  - Bradycardia [Unknown]
  - Hypokalaemia [Unknown]
  - Malaise [Unknown]

NARRATIVE: CASE EVENT DATE: 20170128
